FAERS Safety Report 20858168 (Version 2)
Quarter: 2022Q4

REPORT INFORMATION
  Report Type: Spontaneous
  Country: CN (occurrence: CN)
  Receive Date: 20220521
  Receipt Date: 20221122
  Transmission Date: 20230113
  Serious: Yes (Hospitalization, Other)
  Sender: FDA-Public Use
  Company Number: CN-MACLEODS PHARMACEUTICALS US LTD-MAC2022035668

PATIENT

DRUGS (4)
  1. CLOPIDOGREL [Suspect]
     Active Substance: CLOPIDOGREL BISULFATE
     Indication: Essential thrombocythaemia
     Dosage: UNK (START DATE NOV 2019, END DATE MAR 2020)
     Route: 065
  2. ASPIRIN [Suspect]
     Active Substance: ASPIRIN
     Indication: Essential thrombocythaemia
     Dosage: UNK (START NOV 2019, DURATION OF DRUG 3 WEEKS)
     Route: 065
  3. ASPIRIN [Suspect]
     Active Substance: ASPIRIN
     Dosage: 100 MILLIGRAM, QD (START IN 2019 AND STOP ON MAR 2020)
     Route: 065
  4. ATORVASTATIN [Concomitant]
     Active Substance: ATORVASTATIN
     Indication: Essential thrombocythaemia
     Dosage: 20 MILLIGRAM, QD (START IN 2019)
     Route: 065

REACTIONS (14)
  - Haemorrhagic stroke [Not Recovered/Not Resolved]
  - Ischaemic stroke [Not Recovered/Not Resolved]
  - Cerebrovascular accident [Not Recovered/Not Resolved]
  - Cerebral haematoma [Unknown]
  - Cerebral arteriosclerosis [Unknown]
  - Cerebral artery stenosis [Unknown]
  - Hemiplegia [Unknown]
  - Speech disorder [Unknown]
  - Psychotic disorder [Unknown]
  - Urinary incontinence [Unknown]
  - Anal incontinence [Unknown]
  - Mental disorder [Unknown]
  - Mental impairment [Unknown]
  - Lethargy [Unknown]

NARRATIVE: CASE EVENT DATE: 20200309
